FAERS Safety Report 6604051-8 (Version None)
Quarter: 2010Q1

REPORT INFORMATION
  Report Type: 
  Country: None (occurrence: None)
  Receive Date: 20100226
  Receipt Date: 20090428
  Transmission Date: 20100710
  Serious: Yes (Other)
  Sender: FDA-Public Use
  Company Number: A0781041A

PATIENT
  Age: 42 Year
  Sex: Female

DRUGS (3)
  1. LAMICTAL CD [Suspect]
     Indication: BIPOLAR DISORDER
     Route: 048
  2. NEXIUM [Concomitant]
  3. CELEXA [Concomitant]

REACTIONS (3)
  - HAEMATEMESIS [None]
  - NAUSEA [None]
  - RASH [None]
